FAERS Safety Report 4349435-6 (Version None)
Quarter: 2004Q2

REPORT INFORMATION
  Report Type: 
  Country: None (occurrence: None)
  Receive Date: 20040428
  Receipt Date: 20040420
  Transmission Date: 20050107
  Serious: Yes (Other)
  Sender: FDA-Public Use
  Company Number: PHNU2004DE01579

PATIENT
  Age: 65 Year
  Sex: Female

DRUGS (5)
  1. LOCOL [Suspect]
     Indication: HYPERCHOLESTEROLAEMIA
     Dosage: 80 MG, QD
     Dates: start: 20030101
  2. INSULIN [Concomitant]
     Indication: DIABETES MELLITUS
  3. MICARDIS PLUS [Concomitant]
  4. DILATREND [Concomitant]
  5. TORSEMIDE [Concomitant]

REACTIONS (3)
  - DIPLOPIA [None]
  - POLYNEUROPATHY [None]
  - VITH NERVE DISORDER [None]
